FAERS Safety Report 8307592-0 (Version None)
Quarter: 2012Q2

REPORT INFORMATION
  Report Type: 
  Country: None (occurrence: None)
  Receive Date: 20120424
  Receipt Date: 20120411
  Transmission Date: 20120825
  Serious: Yes (Hospitalization)
  Sender: FDA-Public Use
  Company Number: FR-COVIDIEN/TYCO HEALTHCARE/MALLINCKRODT-T201201453

PATIENT
  Age: 53 Year
  Sex: Female

DRUGS (5)
  1. CARBOPLATIN [Concomitant]
     Indication: BREAST CANCER
     Dosage: UNK
  2. HYDROCORTISONE [Concomitant]
     Indication: BREAST OEDEMA
     Dosage: UNK
  3. CANNABIS [Suspect]
     Dosage: UNK
  4. BEVACIZUMAB [Suspect]
     Indication: BREAST CANCER
     Dosage: UNK
  5. FLUOXETINE [Suspect]
     Indication: DEPRESSION
     Dosage: UNK

REACTIONS (1)
  - CEREBRAL VASOCONSTRICTION [None]
